FAERS Safety Report 13184659 (Version 1)
Quarter: 2017Q1

REPORT INFORMATION
  Report Type: Report from Study
  Country: MX (occurrence: MX)
  Receive Date: 20170203
  Receipt Date: 20170203
  Transmission Date: 20170428
  Serious: Yes (Life-Threatening, Hospitalization, Other)
  Sender: FDA-Public Use
  Company Number: MX-MYLANLABS-2017M1005770

PATIENT

DRUGS (2)
  1. CISPLATIN. [Suspect]
     Active Substance: CISPLATIN
     Indication: METASTATIC CHORIOCARCINOMA
     Dosage: 20 MG/M2 RECEIVED ONLY FOR 3 DAYS
     Route: 065
  2. ETOPOSIDE. [Suspect]
     Active Substance: ETOPOSIDE
     Indication: METASTATIC CHORIOCARCINOMA
     Dosage: 100 MG/M2 RECEIVED ONLY FOR 3 DAYS
     Route: 065

REACTIONS (2)
  - Respiratory disorder [Unknown]
  - Pulmonary haemorrhage [Unknown]
